FAERS Safety Report 17485963 (Version 2)
Quarter: 2020Q1

REPORT INFORMATION
  Report Type: Spontaneous
  Country: DK (occurrence: DK)
  Receive Date: 20200303
  Receipt Date: 20200304
  Transmission Date: 20200409
  Serious: Yes (Other)
  Sender: FDA-Public Use
  Company Number: DK-PFIZER INC-2020092290

PATIENT
  Age: 32 Year
  Sex: Male

DRUGS (5)
  1. CALCIUM + VITAMIN D [CALCIUM CITRATE;COLECALCIFEROL] [Concomitant]
     Dosage: UNK
     Dates: start: 20150102
  2. MESALAZINE [Concomitant]
     Active Substance: MESALAMINE
     Dosage: 800 MG, UNK
     Dates: start: 20141218
  3. MICONAZOLE. [Concomitant]
     Active Substance: MICONAZOLE
     Dosage: UNK
     Dates: start: 20160309
  4. ETODOLAC. [Concomitant]
     Active Substance: ETODOLAC
     Dosage: 300 MG, UNK
     Dates: start: 20170828
  5. ZESSLY [Suspect]
     Active Substance: INFLIXIMAB
     Indication: COLITIS ULCERATIVE
     Dosage: 520 MG, EVERY 8 WEEKS
     Route: 042
     Dates: start: 201905, end: 20191113

REACTIONS (5)
  - Drug hypersensitivity [Recovered/Resolved]
  - Malaise [Recovered/Resolved]
  - Erythema [Recovered/Resolved]
  - Paraesthesia [Recovered/Resolved]
  - Dyspnoea [Recovered/Resolved]

NARRATIVE: CASE EVENT DATE: 20191113
